FAERS Safety Report 15761760 (Version 1)
Quarter: 2018Q4

REPORT INFORMATION
  Report Type: Spontaneous
  Country: US (occurrence: US)
  Receive Date: 20181226
  Receipt Date: 20181226
  Transmission Date: 20190205
  Serious: Yes (Other)
  Sender: FDA-Public Use
  Company Number: US-GLAXOSMITHKLINE-US2018231627

PATIENT
  Age: 40 Year
  Sex: Male

DRUGS (1)
  1. TERBINAFINE. [Suspect]
     Active Substance: TERBINAFINE
     Indication: ONYCHOMYCOSIS
     Dosage: 250 MG, QD
     Route: 065

REACTIONS (3)
  - Myalgia [Recovering/Resolving]
  - Muscular weakness [Recovering/Resolving]
  - Rhabdomyolysis [Recovering/Resolving]
